FAERS Safety Report 8091203-6 (Version None)
Quarter: 2012Q1

REPORT INFORMATION
  Report Type: 
  Country: None (occurrence: None)
  Receive Date: 20120129
  Receipt Date: 20111025
  Transmission Date: 20120608
  Serious: No
  Sender: FDA-Public Use
  Company Number: US-ABBOTT-11P-163-0868157-00

PATIENT
  Sex: Female

DRUGS (4)
  1. HUMIRA [Suspect]
     Route: 058
  2. HUMIRA [Suspect]
     Indication: CROHN'S DISEASE
     Dosage: DAY 1
     Route: 058
     Dates: start: 20111001, end: 20111001
  3. HUMIRA [Suspect]
     Dosage: DAY 15
     Route: 058
  4. HUMIRA [Suspect]
     Dosage: DAY 15
     Route: 058
     Dates: start: 20111001, end: 20111001

REACTIONS (2)
  - OROPHARYNGEAL PAIN [None]
  - FATIGUE [None]
